FAERS Safety Report 10080968 (Version 2)
Quarter: 2014Q2

REPORT INFORMATION
  Report Type: Spontaneous
  Country: US (occurrence: US)
  Receive Date: 20140416
  Receipt Date: 20140507
  Transmission Date: 20141212
  Serious: No
  Sender: FDA-Public Use
  Company Number: US-PFIZER INC-2014101983

PATIENT
  Age: 75 Year
  Sex: Female

DRUGS (4)
  1. SUTENT [Suspect]
     Indication: PANCREATIC NEUROENDOCRINE TUMOUR
     Dosage: 25 MG, DAILY
     Route: 048
     Dates: start: 20131207
  2. ATENOLOL [Concomitant]
     Dosage: UNK
  3. XELODA [Concomitant]
     Dosage: UNK
     Dates: start: 20140420
  4. TEMOZOLOMIDE [Concomitant]
     Dosage: UNK
     Dates: start: 20140420

REACTIONS (1)
  - Dyspepsia [Recovered/Resolved]
